FAERS Safety Report 4279630-6 (Version None)
Quarter: 2004Q1

REPORT INFORMATION
  Report Type: 
  Country: None (occurrence: None)
  Receive Date: 20040123
  Receipt Date: 20040107
  Transmission Date: 20041129
  Serious: Yes (Hospitalization)
  Sender: FDA-Public Use
  Company Number: 2004-DE-00054GD (0)

PATIENT
  Age: 45 Year
  Sex: Female

DRUGS (6)
  1. AZATHIOPRINE [Suspect]
     Indication: PROPHYLAXIS AGAINST TRANSPLANT REJECTION
     Dosage: 100 MG
  2. PREDNISOLONE [Suspect]
     Indication: PROPHYLAXIS AGAINST TRANSPLANT REJECTION
     Dosage: 5 MG
  3. CICLOSPORINE A (CICLOSPORIN) [Suspect]
     Indication: PROPHYLAXIS AGAINST TRANSPLANT REJECTION
  4. CLODRONATE (CLONDRONIC ACID) [Concomitant]
  5. PIRACETAM (PIRACETAM) [Concomitant]
  6. PROTHIOPENDYL (PROTHIOPENDYL) [Concomitant]

REACTIONS (18)
  - ANAEMIA [None]
  - ARTHRITIS [None]
  - BLOOD CHOLESTEROL INCREASED [None]
  - BLOOD CREATINE INCREASED [None]
  - BLOOD PRESSURE INCREASED [None]
  - BLOOD UREA INCREASED [None]
  - BLOOD URIC ACID INCREASED [None]
  - CEREBRAL HAEMORRHAGE [None]
  - DIABETES MELLITUS INSULIN-DEPENDENT [None]
  - ERYSIPELAS [None]
  - HYPERGAMMAGLOBULINAEMIA [None]
  - INFLAMMATION [None]
  - MENTAL DISORDER [None]
  - MYCOBACTERIUM MARINUM INFECTION [None]
  - NECROTISING PANNICULITIS [None]
  - SOMNOLENCE [None]
  - STAPHYLOCOCCAL INFECTION [None]
  - STREPTOCOCCAL INFECTION [None]
